FAERS Safety Report 10147398 (Version 1)
Quarter: 2014Q2

REPORT INFORMATION
  Report Type: Spontaneous
  Country: GB (occurrence: GB)
  Receive Date: 20140501
  Receipt Date: 20140501
  Transmission Date: 20141212
  Serious: Yes (Life-Threatening)
  Sender: FDA-Public Use
  Company Number: PHHY2014GB050569

PATIENT
  Age: 10 Year
  Sex: Female
  Weight: 49 kg

DRUGS (3)
  1. CLONIDINE [Suspect]
     Indication: ATTENTION DEFICIT/HYPERACTIVITY DISORDER
     Dosage: 25 UG, TID
     Route: 048
     Dates: start: 20140305, end: 20140305
  2. PIZOTIFEN [Suspect]
     Indication: MIGRAINE
     Route: 048
  3. OXYBUTYNIN [Concomitant]
     Indication: BLADDER DISORDER

REACTIONS (2)
  - Chest pain [Recovered/Resolved]
  - Sedation [Recovered/Resolved]
